FAERS Safety Report 7361138-2 (Version None)
Quarter: 2011Q1

REPORT INFORMATION
  Report Type: 
  Country: None (occurrence: None)
  Receive Date: 20110318
  Receipt Date: 20110316
  Transmission Date: 20110831
  Serious: Yes (Hospitalization)
  Sender: FDA-Public Use
  Company Number: CO-ROCHE-765626

PATIENT
  Sex: Male

DRUGS (4)
  1. CYCLOSPORINE [Concomitant]
     Route: 048
  2. CELLCEPT [Suspect]
     Route: 048
     Dates: start: 20091027
  3. PRAZOSIN HCL [Concomitant]
     Indication: HYPERTENSION
     Route: 048
  4. CLONIDINE [Concomitant]
     Indication: HYPERTENSION
     Route: 048

REACTIONS (2)
  - TRANSPLANT REJECTION [None]
  - URINARY TRACT INFECTION [None]
